FAERS Safety Report 5947749-7 (Version None)
Quarter: 2008Q4

REPORT INFORMATION
  Report Type: 
  Country: None (occurrence: None)
  Receive Date: 20081111
  Receipt Date: 20081103
  Transmission Date: 20090506
  Serious: Yes (Death)
  Sender: FDA-Public Use
  Company Number: NL-JNJFOC-20080703519

PATIENT
  Sex: Male

DRUGS (17)
  1. ACETAMINOPHEN [Suspect]
  2. ACETAMINOPHEN [Suspect]
     Indication: PAIN
  3. DICLOFENAC SODIUM [Suspect]
     Indication: PAIN
  4. BLINDED THERAPY [Suspect]
     Indication: NON-SMALL CELL LUNG CANCER
     Route: 048
  5. ERLOTINIB [Suspect]
     Indication: NON-SMALL CELL LUNG CANCER
     Route: 048
  6. DURAGESIC-100 [Concomitant]
     Indication: PAIN
  7. POLARAMIDE [Concomitant]
  8. NITROGLYCERIN [Concomitant]
  9. OMEPRAZOLE [Concomitant]
  10. PREDNISONE [Concomitant]
  11. OXYNORM [Concomitant]
  12. MOVICOLON [Concomitant]
  13. GABAPENTIN [Concomitant]
  14. PALLADONE [Concomitant]
     Indication: PAIN
  15. NITRAZEPAM [Concomitant]
     Indication: PAIN
  16. OXAZEPAM [Concomitant]
     Indication: PAIN
  17. MORPHINE [Concomitant]
     Indication: PAIN

REACTIONS (2)
  - ACUTE ABDOMEN [None]
  - INCORRECT DOSE ADMINISTERED [None]
